FAERS Safety Report 9220625 (Version 2)
Quarter: 2013Q2

REPORT INFORMATION
  Report Type: Spontaneous
  Country: US (occurrence: US)
  Receive Date: 20130409
  Receipt Date: 20130508
  Transmission Date: 20140414
  Serious: Yes (Other)
  Sender: FDA-Public Use
  Company Number: US-TEVA-395092USA

PATIENT
  Age: 52 Year
  Sex: Female

DRUGS (1)
  1. COPAXONE [Suspect]
     Indication: MULTIPLE SCLEROSIS

REACTIONS (7)
  - Injection site nerve damage [Recovering/Resolving]
  - Injection site pain [Recovering/Resolving]
  - Injection site anaesthesia [Unknown]
  - Pain [Recovering/Resolving]
  - Burning sensation [Recovering/Resolving]
  - Clumsiness [Recovering/Resolving]
  - Muscular weakness [Recovering/Resolving]
